FAERS Safety Report 7478326-7 (Version None)
Quarter: 2011Q2

REPORT INFORMATION
  Report Type: 
  Country: None (occurrence: None)
  Receive Date: 20110513
  Receipt Date: 20110510
  Transmission Date: 20111010
  Serious: Yes (Other)
  Sender: FDA-Public Use
  Company Number: PHHY2010US87640

PATIENT
  Sex: Female

DRUGS (6)
  1. TOBI [Suspect]
     Indication: CYSTIC FIBROSIS
     Dosage: 300 MG, BID
     Dates: start: 20101110, end: 20101218
  2. SINGULAIR [Concomitant]
     Indication: CYSTIC FIBROSIS
     Dosage: QD
     Route: 048
  3. VITAMINS NOS [Concomitant]
     Indication: CYSTIC FIBROSIS
     Dosage: BID
     Route: 048
  4. PULMOZYME [Concomitant]
     Dosage: UNK
  5. CREON [Concomitant]
     Dosage: WITH MEALS
     Route: 048
  6. PANCREATIC ENZYMES [Concomitant]
     Dosage: UNK

REACTIONS (1)
  - STAPHYLOCOCCAL INFECTION [None]
